FAERS Safety Report 6208683-0 (Version None)
Quarter: 2009Q2

REPORT INFORMATION
  Report Type: 
  Country: None (occurrence: None)
  Receive Date: 20090522
  Receipt Date: 20090313
  Transmission Date: 20091009
  Serious: No
  Sender: FDA-Public Use
  Company Number: 8043930

PATIENT
  Age: 46 Year
  Sex: Female
  Weight: 100 kg

DRUGS (7)
  1. CIMZIA [Suspect]
     Indication: CROHN'S DISEASE
     Dosage: 400 MG SC
     Route: 058
     Dates: start: 20090303
  2. TOPROL-XL [Concomitant]
  3. SYNTHROID [Concomitant]
  4. LEXAPRO [Concomitant]
  5. ENTOCORT EC [Concomitant]
  6. DYAZIDE [Concomitant]
  7. KLOR-CON [Concomitant]

REACTIONS (1)
  - ARTHRALGIA [None]
